FAERS Safety Report 20998775 (Version 3)
Quarter: 2022Q4

REPORT INFORMATION
  Report Type: Spontaneous
  Country: US (occurrence: US)
  Receive Date: 20220623
  Receipt Date: 20221006
  Transmission Date: 20230112
  Serious: No
  Sender: FDA-Public Use
  Company Number: US-PFIZER INC-202200881511

PATIENT
  Age: 59 Year
  Sex: Female

DRUGS (1)
  1. XELJANZ [Suspect]
     Active Substance: TOFACITINIB CITRATE
     Dosage: 5 MG
     Dates: start: 202112

REACTIONS (9)
  - Condition aggravated [Not Recovered/Not Resolved]
  - Pain [Unknown]
  - Candida infection [Unknown]
  - Fungal infection [Unknown]
  - Loss of personal independence in daily activities [Unknown]
  - Infection [Unknown]
  - Illness [Unknown]
  - Upper respiratory tract infection [Unknown]
  - Herpes zoster [Unknown]
